FAERS Safety Report 8101072-3 (Version None)
Quarter: 2012Q1

REPORT INFORMATION
  Report Type: 
  Country: None (occurrence: None)
  Receive Date: 20120129
  Receipt Date: 20110907
  Transmission Date: 20120608
  Serious: No
  Sender: FDA-Public Use
  Company Number: US-ABBOTT-11P-163-0852652-00

PATIENT
  Sex: Female
  Weight: 113.5 kg

DRUGS (2)
  1. GLIPIZIDE [Concomitant]
     Indication: DIABETES MELLITUS
  2. HUMIRA [Suspect]
     Indication: PSORIASIS
     Dates: start: 20110201

REACTIONS (3)
  - PRURITUS [None]
  - INJECTION SITE RASH [None]
  - PAIN OF SKIN [None]
